FAERS Safety Report 8158092-2 (Version None)
Quarter: 2012Q1

REPORT INFORMATION
  Report Type: 
  Country: None (occurrence: None)
  Receive Date: 20120222
  Receipt Date: 20120217
  Transmission Date: 20120608
  Serious: Yes (Hospitalization, Other)
  Sender: FDA-Public Use
  Company Number: PHHY2012FR010987

PATIENT
  Sex: Female
  Weight: 73 kg

DRUGS (3)
  1. CERTICAN [Suspect]
     Indication: RENAL TRANSPLANT
     Dosage: 2 MG, BID
     Dates: start: 20060111
  2. MYFORTIC [Concomitant]
     Dosage: 360 MG, BID
     Dates: start: 20080410
  3. PREDNISOLONE [Concomitant]
     Dosage: 5 MG, QD
     Dates: start: 20051207

REACTIONS (1)
  - PERICARDITIS [None]
